FAERS Safety Report 9799164 (Version 1)
Quarter: 2014Q1

REPORT INFORMATION
  Report Type: Spontaneous
  Country: SE (occurrence: None)
  Receive Date: 20140102
  Receipt Date: 20140102
  Transmission Date: 20141002
  Serious: Yes (Other)
  Sender: FDA-Public Use
  Company Number: SYM-2013-11131

PATIENT
  Age: 45 Year
  Sex: Male

DRUGS (4)
  1. VOXRA [Suspect]
     Indication: PRODUCT USED FOR UNKNOWN INDICATION
     Dates: start: 20120911, end: 20121006
  2. CYMBALTA [Concomitant]
  3. PROPVAN (PROPIOMAZINE MALEATE )(PROPIOMAZINE MALEATE) [Concomitant]
  4. IMOVANE (ZOPICLONE)(ZOPICLONE) [Concomitant]

REACTIONS (5)
  - Convulsion [None]
  - Joint injury [None]
  - Dizziness [None]
  - Memory impairment [None]
  - Tongue biting [None]
